FAERS Safety Report 11754317 (Version 1)
Quarter: 2015Q4

REPORT INFORMATION
  Report Type: Spontaneous
  Country: US (occurrence: None)
  Receive Date: 20151118
  Receipt Date: 20151118
  Transmission Date: 20160304
  Serious: No
  Sender: FDA-Public Use
  Company Number: None

PATIENT
  Age: 1 Month
  Sex: Female

DRUGS (1)
  1. PROLIA [Suspect]
     Active Substance: DENOSUMAB
     Indication: OSTEOPOROSIS
     Dosage: Q6M
     Route: 058
     Dates: start: 20150606

REACTIONS (2)
  - Injection site discomfort [None]
  - Arthropathy [None]

NARRATIVE: CASE EVENT DATE: 19331016
